FAERS Safety Report 7922046-9 (Version None)
Quarter: 2011Q4

REPORT INFORMATION
  Report Type: 
  Country: None (occurrence: None)
  Receive Date: 20111117
  Receipt Date: 20111109
  Transmission Date: 20120403
  Serious: Yes (Other)
  Sender: FDA-Public Use
  Company Number: US-ASTRAZENECA-2011SE68542

PATIENT
  Age: 50 Year
  Sex: Male

DRUGS (2)
  1. DEPAKOTE [Concomitant]
  2. SEROQUEL XR [Suspect]
     Route: 048

REACTIONS (1)
  - APLASTIC ANAEMIA [None]
